FAERS Safety Report 9398905 (Version 1)
Quarter: 2013Q3

REPORT INFORMATION
  Report Type: Spontaneous
  Country: US (occurrence: US)
  Receive Date: 20130712
  Receipt Date: 20130712
  Transmission Date: 20140515
  Serious: No
  Sender: FDA-Public Use
  Company Number: US-TEVA-418519USA

PATIENT
  Sex: 0

DRUGS (1)
  1. TREANDA [Suspect]

REACTIONS (1)
  - Extravasation [Unknown]
